FAERS Safety Report 18169191 (Version 4)
Quarter: 2020Q4

REPORT INFORMATION
  Report Type: Report from Study
  Country: LB (occurrence: LB)
  Receive Date: 20200819
  Receipt Date: 20201225
  Transmission Date: 20210113
  Serious: Yes (Life-Threatening)
  Sender: FDA-Public Use
  Company Number: NVSC2020LB228459

PATIENT
  Age: 32 Year
  Sex: Female
  Weight: 47 kg

DRUGS (1)
  1. JADENU [Suspect]
     Active Substance: DEFERASIROX
     Indication: THALASSAEMIA
     Dosage: 3 DF, QD (360 MG, 180 MG 1)
     Route: 048
     Dates: start: 20200127

REACTIONS (5)
  - Suicidal behaviour [Recovering/Resolving]
  - Negative thoughts [Recovering/Resolving]
  - Pain in extremity [Not Recovered/Not Resolved]
  - Nightmare [Recovering/Resolving]
  - Flashback [Recovering/Resolving]

NARRATIVE: CASE EVENT DATE: 20200804
